FAERS Safety Report 7903196-X (Version None)
Quarter: 2011Q4

REPORT INFORMATION
  Report Type: 
  Country: None (occurrence: None)
  Receive Date: 20111103
  Receipt Date: 20111024
  Transmission Date: 20120403
  Serious: Yes (Hospitalization)
  Sender: FDA-Public Use
  Company Number: DSA_48086_2011

PATIENT

DRUGS (1)
  1. BUPROPION HYDROCHLORIDE [Suspect]
     Indication: SMOKING CESSATION THERAPY
     Dosage: DF TRANSPLACENTAL
     Route: 064

REACTIONS (3)
  - CONVULSION [None]
  - MATERNAL DRUGS AFFECTING FOETUS [None]
  - HYPERINSULINISM [None]
